FAERS Safety Report 13731027 (Version 1)
Quarter: 2017Q3

REPORT INFORMATION
  Report Type: Spontaneous
  Country: US (occurrence: US)
  Receive Date: 20170707
  Receipt Date: 20170707
  Transmission Date: 20171127
  Serious: No
  Sender: FDA-Public Use
  Company Number: US-JNJFOC-20170506518

PATIENT
  Sex: Male
  Weight: 52.16 kg

DRUGS (7)
  1. LIPITOR [Concomitant]
     Active Substance: ATORVASTATIN CALCIUM
     Indication: BLOOD CHOLESTEROL INCREASED
     Route: 048
  2. BORON [Concomitant]
     Active Substance: BORON
     Indication: NUTRITIONAL SUPPLEMENTATION
     Route: 065
  3. BORON [Concomitant]
     Active Substance: BORON
     Indication: NEOPLASM MALIGNANT
     Route: 065
  4. CALCIUM [Concomitant]
     Active Substance: CALCIUM
     Indication: NUTRITIONAL SUPPLEMENTATION
     Route: 065
  5. MAGNESIUM [Concomitant]
     Active Substance: MAGNESIUM
     Indication: NUTRITIONAL SUPPLEMENTATION
     Route: 065
  6. LYCOPENE [Concomitant]
     Active Substance: LYCOPENE
     Indication: NUTRITIONAL SUPPLEMENTATION
     Route: 065
  7. XARELTO [Suspect]
     Active Substance: RIVAROXABAN
     Indication: DEEP VEIN THROMBOSIS
     Route: 048
     Dates: start: 2016

REACTIONS (3)
  - Drug dose omission [Unknown]
  - Gingival bleeding [Unknown]
  - Dental restoration failure [Unknown]

NARRATIVE: CASE EVENT DATE: 2016
